FAERS Safety Report 7394383-0 (Version None)
Quarter: 2011Q2

REPORT INFORMATION
  Report Type: 
  Country: None (occurrence: None)
  Receive Date: 20110405
  Receipt Date: 20110323
  Transmission Date: 20111010
  Serious: Yes (Hospitalization, Other)
  Sender: FDA-Public Use
  Company Number: US-ELI_LILLY_AND_COMPANY-US201010001124

PATIENT
  Age: 81 Year
  Sex: Female
  Weight: 47.483 kg

DRUGS (1)
  1. FORTEO [Suspect]
     Indication: OSTEOPOROSIS
     Dosage: 20 UG, DAILY (1/D)
     Dates: start: 20100601, end: 20101201

REACTIONS (6)
  - PAIN [None]
  - TRAUMATIC SHOCK [None]
  - UPPER LIMB FRACTURE [None]
  - AMNESIA [None]
  - FALL [None]
  - BURNING SENSATION [None]
